FAERS Safety Report 4280041-8 (Version None)
Quarter: 2004Q1

REPORT INFORMATION
  Report Type: 
  Country: None (occurrence: None)
  Receive Date: 20040126
  Receipt Date: 20040115
  Transmission Date: 20041129
  Serious: Yes (Hospitalization)
  Sender: FDA-Public Use
  Company Number: 03P-056-0244578-00

PATIENT
  Age: 88 Year
  Sex: Female

DRUGS (3)
  1. DEPAKENE [Suspect]
     Indication: STATUS EPILEPTICUS
     Dosage: 500 MG, 2 IN 1 D, PER ORAL
     Route: 048
     Dates: start: 20020815, end: 20030715
  2. FLUOXETINE HYDROCHLORIDE [Concomitant]
  3. MIANSERIN HYDROCHLORIDE [Concomitant]

REACTIONS (11)
  - ACTIVITIES OF DAILY LIVING IMPAIRED [None]
  - ANAEMIA [None]
  - ASTHENIA [None]
  - DIFFICULTY IN WALKING [None]
  - DYSPNOEA EXERTIONAL [None]
  - GENERAL PHYSICAL HEALTH DETERIORATION [None]
  - HAEMOGLOBIN DECREASED [None]
  - NEUTROPENIA [None]
  - NEUTROPHIL COUNT DECREASED [None]
  - PLATELET COUNT DECREASED [None]
  - THROMBOCYTOPENIA [None]
